FAERS Safety Report 12404460 (Version 4)
Quarter: 2017Q2

REPORT INFORMATION
  Report Type: Report from Study
  Country: US (occurrence: US)
  Receive Date: 20160525
  Receipt Date: 20170403
  Transmission Date: 20170830
  Serious: Yes (Death, Other)
  Sender: FDA-Public Use
  Company Number: US-009507513-1605USA011925

PATIENT
  Age: 81 Year
  Sex: Female
  Weight: 68.48 kg

DRUGS (10)
  1. OCUVITE PRESERVISION [Concomitant]
  2. EMEND [Suspect]
     Active Substance: APREPITANT
     Indication: UTERINE CANCER
  3. NEXIUM [Concomitant]
     Active Substance: ESOMEPRAZOLE MAGNESIUM
     Dosage: 1 DF, UNK
  4. EMEND [Suspect]
     Active Substance: APREPITANT
     Indication: NAUSEA
     Dosage: 125MG ON THE FIRST DAY, 80 MG ON THE SECOND AND THIRD DAY, CYCLICAL
     Route: 048
     Dates: start: 201507, end: 201511
  5. EMEND [Suspect]
     Active Substance: APREPITANT
     Indication: OVARIAN CANCER
  6. LORAZEPAM. [Concomitant]
     Active Substance: LORAZEPAM
     Dosage: 1 TABLET AS NEEDED, TWICE A DAY
  7. DOXIL [Concomitant]
     Active Substance: DOXORUBICIN HYDROCHLORIDE
     Indication: CHEMOTHERAPY
     Dosage: UNK, Q28 DAYS
  8. CALCIUM (UNSPECIFIED) (+) VITAMIN D (UNSPECIFIED) [Concomitant]
     Active Substance: CALCIUM CARBONATE\VITAMIN D
     Dosage: A TABLET WITH FOOD ONCE DAILY
  9. DEXAMETHASONE. [Suspect]
     Active Substance: DEXAMETHASONE
     Dosage: 3 TABLET, AT THE EVENING BEFORE CHEMO, 3 TABLET IN THE MORNING OF CHEMO, 1 TABLET BID ON DAYS 2-4
     Route: 048
  10. EMEND [Suspect]
     Active Substance: APREPITANT
     Indication: BREAST CANCER

REACTIONS (9)
  - Hypoaesthesia [Unknown]
  - Product use in unapproved indication [Unknown]
  - Paraesthesia [Unknown]
  - Death [Fatal]
  - Skin warm [Unknown]
  - Dry skin [Unknown]
  - Breast cancer recurrent [Unknown]
  - Endometrial cancer recurrent [Unknown]
  - Uterine cancer [Unknown]

NARRATIVE: CASE EVENT DATE: 201602
